FAERS Safety Report 9682735 (Version 2)
Quarter: 2013Q4

REPORT INFORMATION
  Report Type: Spontaneous
  Country: NO (occurrence: NO)
  Receive Date: 20131112
  Receipt Date: 20131220
  Transmission Date: 20140711
  Serious: Yes (Other)
  Sender: FDA-Public Use
  Company Number: NO-JNJFOC-20131102400

PATIENT
  Age: 59 Year
  Sex: Female
  Weight: 110 kg

DRUGS (2)
  1. STELARA [Suspect]
     Indication: PSORIASIS
     Route: 058
  2. PENICILLIN [Concomitant]
     Route: 065

REACTIONS (2)
  - Squamous cell carcinoma [Unknown]
  - Basal cell carcinoma [Unknown]
